FAERS Safety Report 6174781-3 (Version None)
Quarter: 2009Q2

REPORT INFORMATION
  Report Type: 
  Country: None (occurrence: None)
  Receive Date: 20090430
  Receipt Date: 20080923
  Transmission Date: 20091009
  Serious: No
  Sender: FDA-Public Use
  Company Number: US-ASTRAZENECA-2008UW19965

PATIENT
  Age: 77 Year
  Sex: Male
  Weight: 104.3 kg

DRUGS (5)
  1. NEXIUM [Suspect]
     Indication: DYSPHAGIA
     Route: 048
     Dates: start: 20030101
  2. CRESTOR [Concomitant]
     Route: 048
  3. EFFEXOR [Concomitant]
  4. DIOVAN [Concomitant]
  5. MINOCYCLINE HCL [Concomitant]

REACTIONS (2)
  - OESOPHAGEAL DISORDER [None]
  - THROAT IRRITATION [None]
